FAERS Safety Report 22168686 (Version 5)
Quarter: 2023Q2

REPORT INFORMATION
  Report Type: Spontaneous
  Country: US (occurrence: US)
  Receive Date: 20230403
  Receipt Date: 20230619
  Transmission Date: 20230721
  Serious: Yes (Other)
  Sender: FDA-Public Use
  Company Number: US-BAUSCHBL-2023BNL002300

PATIENT
  Age: 65 Year
  Sex: Female
  Weight: 59.02 kg

DRUGS (4)
  1. MURO 128 [Suspect]
     Active Substance: SODIUM CHLORIDE
     Indication: Dry eye
     Dosage: UNABLE TO RECALL EXACT START DATE DATES (3-4 YEAR^S)
     Route: 065
     Dates: end: 20230320
  2. MURO 128 [Suspect]
     Active Substance: SODIUM CHLORIDE
     Indication: Eye oedema
  3. ASPIRIN [Concomitant]
     Active Substance: ASPIRIN
     Indication: Product used for unknown indication
  4. METRONIDAZOLE [Concomitant]
     Active Substance: METRONIDAZOLE
     Indication: Product used for unknown indication

REACTIONS (5)
  - Blood pressure increased [Recovered/Resolved]
  - Anxiety [Recovered/Resolved]
  - Instillation site pruritus [Recovered/Resolved]
  - Chills [Recovered/Resolved]
  - Instillation site lacrimation [Recovered/Resolved]
